FAERS Safety Report 4471913-X (Version None)
Quarter: 2004Q4

REPORT INFORMATION
  Report Type: 
  Country: None (occurrence: None)
  Receive Date: 20041007
  Receipt Date: 20040929
  Transmission Date: 20050328
  Serious: Yes (Death)
  Sender: FDA-Public Use
  Company Number: CN-2004-032815

PATIENT
  Age: 60 Year
  Sex: Male

DRUGS (2)
  1. ULTRAVIST 370 [Suspect]
     Indication: COMPUTERISED TOMOGRAM ABDOMEN
     Dosage: 100 ML, INTRAVENOUS
     Route: 042
     Dates: start: 20040517, end: 20040517
  2. DEXAMETHASONE [Concomitant]

REACTIONS (8)
  - ATRIAL FIBRILLATION [None]
  - BLOOD PRESSURE DECREASED [None]
  - BRONCHOSPASM [None]
  - CARDIAC ARREST [None]
  - CYANOSIS [None]
  - DYSPNOEA [None]
  - PULMONARY OEDEMA [None]
  - VOMITING [None]
